FAERS Safety Report 25095335 (Version 2)
Quarter: 2025Q1

REPORT INFORMATION
  Report Type: Spontaneous
  Country: DE (occurrence: DE)
  Receive Date: 20250319
  Receipt Date: 20250328
  Transmission Date: 20250408
  Serious: Yes (Hospitalization, Other)
  Sender: INSUD PHARMA
  Company Number: DE-EXELTIS PHARMACEUTICAL HOLDING, S.L.-2503DE02003

PATIENT
  Age: 61 Year
  Sex: Female

DRUGS (2)
  1. PROGESTERONE [Suspect]
     Active Substance: PROGESTERONE
     Indication: Menopause
     Dosage: 100 MILLIGRAM, QD
     Route: 048
     Dates: start: 202110, end: 202412
  2. ESTRADIOL [Concomitant]
     Active Substance: ESTRADIOL
     Indication: Product used for unknown indication
     Dates: start: 202110

REACTIONS (5)
  - Retinal detachment [Recovered/Resolved with Sequelae]
  - Retinal tear [Recovered/Resolved with Sequelae]
  - Intermenstrual bleeding [Unknown]
  - Gastrooesophageal reflux disease [Unknown]
  - Product use issue [Recovered/Resolved]

NARRATIVE: CASE EVENT DATE: 20230801
